FAERS Safety Report 23595300 (Version 1)
Quarter: 2024Q1

REPORT INFORMATION
  Report Type: Spontaneous
  Country: CO (occurrence: CO)
  Receive Date: 20240305
  Receipt Date: 20240305
  Transmission Date: 20240409
  Serious: Yes (Hospitalization, Other)
  Sender: FDA-Public Use
  Company Number: CO-BAYER-2024A018421

PATIENT
  Sex: Female

DRUGS (1)
  1. EYLEA [Suspect]
     Active Substance: AFLIBERCEPT
     Indication: Diabetic retinal oedema
     Dosage: UNK, 40 MG/ML

REACTIONS (2)
  - Eye operation [Recovered/Resolved with Sequelae]
  - Drug ineffective [Unknown]

NARRATIVE: CASE EVENT DATE: 20240213
